FAERS Safety Report 11467930 (Version 1)
Quarter: 2015Q3

REPORT INFORMATION
  Report Type: Spontaneous
  Country: US (occurrence: None)
  Receive Date: 20150904
  Receipt Date: 20150904
  Transmission Date: 20151125
  Serious: No
  Sender: FDA-Public Use
  Company Number: None

PATIENT
  Sex: Male

DRUGS (3)
  1. PROCRIT [Suspect]
     Active Substance: ERYTHROPOIETIN
     Indication: GRANULOMATOSIS WITH POLYANGIITIS
     Dosage: 10,000 UNITS SUBCUTANEOUSLY
     Route: 058
     Dates: start: 20150430
  2. PREDNISONE. [Concomitant]
     Active Substance: PREDNISONE
  3. AUGMENTIN [Concomitant]
     Active Substance: AMOXICILLIN\CLAVULANATE POTASSIUM

REACTIONS (2)
  - Pneumonia [None]
  - Drug dose omission [None]
